FAERS Safety Report 18914497 (Version 1)
Quarter: 2021Q1

REPORT INFORMATION
  Report Type: Spontaneous
  Country: FR (occurrence: FR)
  Receive Date: 20210218
  Receipt Date: 20210218
  Transmission Date: 20210420
  Serious: No
  Sender: FDA-Public Use
  Company Number: FR-JAZZ-2020-FR-018240

PATIENT

DRUGS (2)
  1. ZEPZELCA [Suspect]
     Active Substance: LURBINECTEDIN
     Indication: BRONCHIAL CARCINOMA
     Dosage: 6.4 MILLIGRAM Q3W
     Route: 042
     Dates: start: 20200409, end: 20200430
  2. MORPHINE SULFATE. [Suspect]
     Active Substance: MORPHINE SULFATE
     Indication: CANCER PAIN
     Dosage: 60 MILLIGRAM, QD
     Route: 048

REACTIONS (3)
  - Vomiting [Recovered/Resolved]
  - Hiccups [Recovered/Resolved]
  - Nausea [Recovered/Resolved]

NARRATIVE: CASE EVENT DATE: 202004
